FAERS Safety Report 9949774 (Version 1)
Quarter: 2014Q1

REPORT INFORMATION
  Report Type: Spontaneous
  Country: US (occurrence: None)
  Receive Date: 20140123
  Receipt Date: 20140123
  Transmission Date: 20141002
  Serious: Yes (Other)
  Sender: FDA-Public Use
  Company Number: USW201308-000094

PATIENT
  Sex: Female

DRUGS (1)
  1. MYOBLOC [Suspect]

REACTIONS (3)
  - Throat irritation [None]
  - Hypersensitivity [None]
  - Dysphagia [None]
